FAERS Safety Report 5118746-9 (Version None)
Quarter: 2006Q3

REPORT INFORMATION
  Report Type: 
  Country: None (occurrence: None)
  Receive Date: 20060927
  Receipt Date: 20060914
  Transmission Date: 20061208
  Serious: Yes (Disabling, Other)
  Sender: FDA-Public Use
  Company Number: 2006105528

PATIENT
  Age: 50 Year
  Sex: Female

DRUGS (2)
  1. EPIRUBICIN [Suspect]
     Indication: BREAST CANCER
     Dosage: 400 MG/M2
     Dates: start: 20010701, end: 20010901
  2. LETROZOLE [Suspect]
     Dates: start: 20010901, end: 20060401

REACTIONS (3)
  - BLOOD PRESSURE SYSTOLIC DECREASED [None]
  - CARDIOMYOPATHY [None]
  - PULMONARY HYPERTENSION [None]
